FAERS Safety Report 9437140 (Version 4)
Quarter: 2013Q4

REPORT INFORMATION
  Report Type: Spontaneous
  Country: US (occurrence: US)
  Receive Date: 20130802
  Receipt Date: 20131226
  Transmission Date: 20140711
  Serious: Yes (Hospitalization, Disabling)
  Sender: FDA-Public Use
  Company Number: US-JNJFOC-20130716073

PATIENT
  Age: 66 Year
  Sex: Male
  Weight: 91.17 kg

DRUGS (3)
  1. XARELTO [Suspect]
     Indication: DEEP VEIN THROMBOSIS
     Route: 048
  2. XARELTO [Suspect]
     Indication: DEEP VEIN THROMBOSIS
     Dosage: FOR ABOUT 3 WEEKS
     Route: 048
     Dates: start: 20130110
  3. ASPIRIN [Suspect]
     Indication: PRODUCT USED FOR UNKNOWN INDICATION
     Route: 065

REACTIONS (3)
  - Haemorrhage intracranial [Recovering/Resolving]
  - Amnesia [Recovered/Resolved with Sequelae]
  - Confusional state [Recovered/Resolved with Sequelae]
